FAERS Safety Report 4636682-9 (Version None)
Quarter: 2005Q2

REPORT INFORMATION
  Report Type: 
  Country: None (occurrence: None)
  Receive Date: 20050414
  Receipt Date: 20050401
  Transmission Date: 20051028
  Serious: Yes (Death)
  Sender: FDA-Public Use
  Company Number: RU-2005-001487

PATIENT
  Age: 19 Year
  Sex: Female

DRUGS (1)
  1. YARINA (DROPIRENONE, ETHINYLESTRADIOL) FILM TABLET [Suspect]
     Dosage: 1 TAB (S), 1X/DAY, ORAL
     Route: 048

REACTIONS (4)
  - BLOOD GLUCOSE INCREASED [None]
  - CARDIAC FAILURE ACUTE [None]
  - PANCREATIC DISORDER [None]
  - SHOCK [None]
